FAERS Safety Report 20180131 (Version 1)
Quarter: 2021Q4

REPORT INFORMATION
  Report Type: Report from Study
  Country: EG (occurrence: EG)
  Receive Date: 20211214
  Receipt Date: 20211214
  Transmission Date: 20220303
  Serious: Yes (Other)
  Sender: FDA-Public Use
  Company Number: EG-NOVARTISPH-NVSC2021EG279120

PATIENT
  Age: 61 Year
  Sex: Male

DRUGS (11)
  1. ENTRESTO [Suspect]
     Active Substance: SACUBITRIL\VALSARTAN
     Indication: Cardiac failure
     Dosage: 50 MG, BID
     Route: 048
     Dates: start: 202001, end: 202008
  2. ENTRESTO [Suspect]
     Active Substance: SACUBITRIL\VALSARTAN
     Dosage: 100 MG, BID
     Route: 048
     Dates: start: 202008, end: 202106
  3. ENTRESTO [Suspect]
     Active Substance: SACUBITRIL\VALSARTAN
     Dosage: 50 MG, BID
     Route: 048
     Dates: start: 20211030
  4. EXAMIDE [Concomitant]
     Indication: Fluid retention
     Dosage: 1 DOSAGE FORM, QD (STARTED ALMOST 4 YEARS AGO, SOMTIMES TWICE DAILY)
     Route: 048
  5. CLOPIDOGREL [Concomitant]
     Active Substance: CLOPIDOGREL BISULFATE
     Indication: Angina unstable
     Dosage: 1 DOSAGE FORM, QD (STARTED ALMOST 4 YEARS AGO)
     Route: 048
  6. CRESTOR [Concomitant]
     Active Substance: ROSUVASTATIN CALCIUM
     Indication: Lipid metabolism disorder
     Dosage: 1 DOSAGE FORM, QD (STARTED ALMOST 4 YEARS AGO)
     Route: 048
  7. CAL-MAG [Concomitant]
     Indication: Bone disorder
     Dosage: 1 DOSAGE FORM, QD(SOMETIMED BID) (STARTED ALMOST 4 YEARS AGO)
     Route: 048
  8. BISOPROLOL FUMARATE [Concomitant]
     Active Substance: BISOPROLOL FUMARATE
     Indication: Cardiac disorder
     Dosage: 1 DOSAGE FORM OF 5 MG, QD (STARTED ALMOST 4 YEARS AGO)
     Route: 048
     Dates: end: 20211030
  9. BISOPROLOL FUMARATE [Concomitant]
     Active Substance: BISOPROLOL FUMARATE
     Dosage: 1 DOSAGE FORM OF 2.5 MG, QD
     Route: 048
     Dates: start: 20211030
  10. SPECTONE [Concomitant]
     Indication: Product used for unknown indication
     Dosage: 1 DOSAGE FORM, QD
     Route: 048
  11. PLAVIX [Concomitant]
     Active Substance: CLOPIDOGREL BISULFATE
     Indication: Product used for unknown indication
     Dosage: 1 DOSAGE FORM, QD
     Route: 048

REACTIONS (5)
  - Cardiomyopathy [Unknown]
  - Fluid retention [Recovering/Resolving]
  - Dyspnoea [Recovering/Resolving]
  - Ejection fraction decreased [Unknown]
  - Pulmonary congestion [Recovering/Resolving]

NARRATIVE: CASE EVENT DATE: 20200101
